FAERS Safety Report 9543186 (Version 1)
Quarter: 2013Q2

REPORT INFORMATION
  Report Type: Spontaneous
  Country: US (occurrence: None)
  Receive Date: 20130524
  Receipt Date: 20130524
  Transmission Date: 20140414
  Serious: Yes (Other)
  Sender: FDA-Public Use
  Company Number: PHEH2012US024983

PATIENT
  Age: 48 Year
  Sex: Female

DRUGS (4)
  1. GILENYA (FINGOLIMOD) CAPSULE, 0.5MG [Suspect]
     Indication: MULTIPLE SCLEROSIS
     Route: 048
     Dates: start: 201110
  2. TOVIAZ (FESOTERODINE FUMARATE) [Concomitant]
  3. BACLOFEN (BACLOFEN) [Concomitant]
  4. WARFARIN SODIUM (WARFARIN SODIUM) [Concomitant]

REACTIONS (5)
  - Rash pruritic [None]
  - Skin discolouration [None]
  - Depression [None]
  - Pruritus [None]
  - Decreased interest [None]
